FAERS Safety Report 8514710-8 (Version None)
Quarter: 2012Q3

REPORT INFORMATION
  Report Type: 
  Country: None (occurrence: None)
  Receive Date: 20120717
  Receipt Date: 20120706
  Transmission Date: 20120928
  Serious: Yes (Hospitalization, Other)
  Sender: FDA-Public Use
  Company Number: US-ACTELION-A-NJ2011-54936

PATIENT

DRUGS (11)
  1. ASPIRIN [Concomitant]
  2. EPOPROSTENOL SODIUM [Suspect]
     Dosage: 10 NG/KG, PER MIN
     Route: 041
     Dates: start: 20100727, end: 20110101
  3. EPOPROSTENOL SODIUM [Suspect]
     Dosage: 14 NG/KG, PER MIN
     Route: 041
     Dates: start: 20111023
  4. LACTULOSE [Concomitant]
  5. POTASSIUM CHLORIDE [Concomitant]
  6. ROXICODONE [Concomitant]
  7. ZOFRAN [Concomitant]
  8. EPOPROSTENOL SODIUM [Suspect]
     Indication: PULMONARY ARTERIAL HYPERTENSION
     Dosage: 16 NG/KG, PER MIN
     Route: 041
     Dates: start: 20110920, end: 20111022
  9. SOMA [Concomitant]
  10. OXYCODONE HCL [Concomitant]
  11. PERCOCET [Concomitant]

REACTIONS (12)
  - BACK PAIN [None]
  - ASPIRATION [None]
  - STENT PLACEMENT [None]
  - DIARRHOEA [None]
  - NEPHROLITHIASIS [None]
  - PNEUMONIA [None]
  - DYSPNOEA [None]
  - ABDOMINAL PAIN [None]
  - VOMITING [None]
  - FATIGUE [None]
  - LITHOTRIPSY [None]
  - NAUSEA [None]
